FAERS Safety Report 6892824-6 (Version None)
Quarter: 2010Q3

REPORT INFORMATION
  Report Type: 
  Country: None (occurrence: None)
  Receive Date: 20100731
  Receipt Date: 20081002
  Transmission Date: 20110219
  Serious: No
  Sender: FDA-Public Use
  Company Number: US-PFIZER INC-2008083800

PATIENT
  Sex: Male
  Weight: 67.13 kg

DRUGS (2)
  1. NEURONTIN [Suspect]
     Indication: NEUROPATHY PERIPHERAL
     Dates: start: 20050901
  2. CATAPRES [Concomitant]

REACTIONS (5)
  - AMNESIA [None]
  - CONFUSIONAL STATE [None]
  - MIGRAINE [None]
  - TREMOR [None]
  - VISUAL IMPAIRMENT [None]
